FAERS Safety Report 14121332 (Version 1)
Quarter: 2017Q4

REPORT INFORMATION
  Report Type: Spontaneous
  Country: DK (occurrence: DK)
  Receive Date: 20171024
  Receipt Date: 20171024
  Transmission Date: 20180321
  Serious: Yes (Life-Threatening, Hospitalization, Other)
  Sender: FDA-Public Use
  Company Number: DK-PFIZER INC-2017453424

PATIENT
  Age: 64 Year
  Sex: Female

DRUGS (12)
  1. EUTHYROX [Concomitant]
     Active Substance: LEVOTHYROXINE SODIUM
     Indication: HYPOTHYROIDISM
     Dosage: 125 UG, 1X/DAY IN THE MORNING
     Route: 048
     Dates: start: 20140427
  2. OXYCODONE ACTAVIS [Suspect]
     Active Substance: OXYCODONE HYDROCHLORIDE
     Indication: PAIN
     Dosage: 30 MG IN MORNING, 30 MG IN EVENING AND 20 MG BEFORE BEDTIME
     Route: 048
     Dates: start: 20131028
  3. PINEX [Concomitant]
     Active Substance: ACETAMINOPHEN
     Indication: PAIN
     Dosage: 1000 MG, AS NEEDED (MAXIMUM 4 TIMES DAILY)
     Route: 048
     Dates: start: 20140804
  4. MIRTAZAPIN HEXAL [Suspect]
     Active Substance: MIRTAZAPINE
     Indication: DEPRESSION
     Dosage: 30MG BEFORE BEDTIME
     Route: 048
     Dates: start: 20160430
  5. EUTHYROX [Concomitant]
     Active Substance: LEVOTHYROXINE SODIUM
     Dosage: 125 UG, 1X/DAY IN THE MORNING
     Route: 048
     Dates: start: 20140427
  6. MEDILAX /00163401/ [Concomitant]
     Indication: CONSTIPATION
     Dosage: 20.01 G, 2X/DAY
     Route: 048
     Dates: start: 20160509
  7. TAFIL RETARD [Suspect]
     Active Substance: ALPRAZOLAM
     Indication: ANXIETY DISORDER
     Dosage: 1 MG, 2X/DAY
     Route: 048
     Dates: start: 20160430
  8. QUETIAPIN SANDOZ [Suspect]
     Active Substance: QUETIAPINE
     Indication: DEPRESSION
     Dosage: 25 MG IN THE MORNING, 25 MG MIDDAY, 75MG BEFORE BEDTIME
     Route: 048
     Dates: start: 20160506
  9. KLORZOXAZON [Suspect]
     Active Substance: CHLORZOXAZONE
     Indication: MUSCLE RELAXANT THERAPY
     Dosage: 250 MG, 3X/DAY
     Route: 048
     Dates: start: 20161118
  10. CLARITHROMYCIN TEVA [Suspect]
     Active Substance: CLARITHROMYCIN
     Indication: PNEUMONIA
     Dosage: 250 MG, 2X/DAY
     Route: 048
     Dates: start: 20170721, end: 20170726
  11. METHADON ALTERNOVA [Suspect]
     Active Substance: METHADONE HYDROCHLORIDE
     Indication: PAIN
     Dosage: 5 MG, 3X/DAY
     Route: 048
     Dates: start: 201706
  12. BAKLOFEN MYLAN [Suspect]
     Active Substance: BACLOFEN
     Indication: MUSCLE RELAXANT THERAPY
     Dosage: 10 MG, 3X/DAY
     Route: 048
     Dates: start: 20170519

REACTIONS (7)
  - Pyrexia [Unknown]
  - Toxicity to various agents [Recovered/Resolved]
  - Blood pressure diastolic decreased [Unknown]
  - Blood pressure systolic decreased [Unknown]
  - Respiratory depression [Recovered/Resolved]
  - Loss of consciousness [Recovered/Resolved]
  - Accidental overdose [Recovered/Resolved]

NARRATIVE: CASE EVENT DATE: 20170708
